FAERS Safety Report 7862298-7 (Version None)
Quarter: 2011Q4

REPORT INFORMATION
  Report Type: 
  Country: None (occurrence: None)
  Receive Date: 20111027
  Receipt Date: 20101104
  Transmission Date: 20120403
  Serious: No
  Sender: FDA-Public Use
  Company Number: US-AMGEN-USASP2010003549

PATIENT
  Age: 34 Year
  Sex: Female

DRUGS (1)
  1. ENBREL [Suspect]
     Indication: RHEUMATOID ARTHRITIS
     Dosage: 50 MG, QWK
     Dates: start: 20100413

REACTIONS (7)
  - INJECTION SITE PAIN [None]
  - LYMPHADENOPATHY [None]
  - GASTRITIS [None]
  - BARRETT'S OESOPHAGUS [None]
  - INJECTION SITE WARMTH [None]
  - INFLAMMATION [None]
  - INJECTION SITE ERYTHEMA [None]
